FAERS Safety Report 9902401 (Version 2)
Quarter: 2014Q1

REPORT INFORMATION
  Report Type: Spontaneous
  Country: US (occurrence: US)
  Receive Date: 20140217
  Receipt Date: 20140217
  Transmission Date: 20141002
  Serious: Yes (Hospitalization)
  Sender: FDA-Public Use
  Company Number: US-GILEAD-2011-0046466

PATIENT
  Sex: Female

DRUGS (3)
  1. LETAIRIS [Suspect]
     Indication: PULMONARY HYPERTENSION
     Dosage: 5 MG, UNK
     Route: 048
     Dates: start: 20110921
  2. LISINOPRIL [Concomitant]
  3. LASIX                              /00032601/ [Concomitant]

REACTIONS (3)
  - Dyspnoea [Unknown]
  - Swelling [Unknown]
  - Unevaluable event [Unknown]
